FAERS Safety Report 10832168 (Version 1)
Quarter: 2015Q1

REPORT INFORMATION
  Report Type: Spontaneous
  Country: US (occurrence: US)
  Receive Date: 20150219
  Receipt Date: 20150219
  Transmission Date: 20150721
  Serious: Yes (Hospitalization, Other)
  Sender: FDA-Public Use
  Company Number: US-RECKITT BENCKISER PHARMACEUTICAL, INC-RB-58015-2013

PATIENT

DRUGS (3)
  1. SUBOXONE [Suspect]
     Active Substance: BUPRENORPHINE HYDROCHLORIDE\NALOXONE HYDROCHLORIDE
     Route: 060
     Dates: start: 2011, end: 2011
  2. SUBOXONE [Suspect]
     Active Substance: BUPRENORPHINE HYDROCHLORIDE\NALOXONE HYDROCHLORIDE
     Indication: DRUG DEPENDENCE
     Route: 060
     Dates: end: 20110411
  3. SUBOXONE [Suspect]
     Active Substance: BUPRENORPHINE HYDROCHLORIDE\NALOXONE HYDROCHLORIDE
     Indication: PRODUCT USED FOR UNKNOWN INDICATION
     Dosage: SUBOXONE FILM; PUT FILM ON TONGUE INSTEAD OF UNDER THE TONGUE; DOSING DETAILS UNKNOWN
     Route: 048

REACTIONS (17)
  - Hyperhidrosis [Recovered/Resolved]
  - Paraesthesia [Recovered/Resolved]
  - Pain [Recovered/Resolved]
  - Malaise [Recovered/Resolved]
  - Blood blister [Recovered/Resolved]
  - Substance abuse [Recovered/Resolved]
  - Condition aggravated [Recovered/Resolved]
  - Cold sweat [Recovered/Resolved]
  - Intentional product misuse [Recovered/Resolved]
  - Vomiting [Recovered/Resolved]
  - Arthritis infective [Recovered/Resolved]
  - Limb crushing injury [Recovered/Resolved]
  - Feeling abnormal [Recovered/Resolved]
  - Diarrhoea [Recovered/Resolved]
  - Expired product administered [Recovered/Resolved]
  - Drug withdrawal syndrome [Recovered/Resolved]
  - Tremor [Recovered/Resolved]

NARRATIVE: CASE EVENT DATE: 2010
